FAERS Safety Report 4296030-3 (Version None)
Quarter: 2004Q1

REPORT INFORMATION
  Report Type: 
  Country: None (occurrence: None)
  Receive Date: 20040212
  Receipt Date: 20040203
  Transmission Date: 20041129
  Serious: Yes (Death)
  Sender: FDA-Public Use
  Company Number: BIVUS040005

PATIENT
  Age: 48 Year
  Sex: Female

DRUGS (6)
  1. ANGIOMAX [Suspect]
     Indication: ANTICOAGULANT THERAPY
     Dosage: SEE IMAGE
     Route: 042
     Dates: start: 20040202, end: 20040202
  2. ANGIOMAX [Suspect]
     Indication: ANTICOAGULANT THERAPY
     Dosage: SEE IMAGE
     Route: 042
     Dates: start: 20040202, end: 20040202
  3. LOVENOX [Suspect]
     Dates: start: 20040202, end: 20040202
  4. CELLCEPT [Concomitant]
  5. PREDNISONE [Concomitant]
  6. ASPIRIN [Concomitant]

REACTIONS (14)
  - ACIDOSIS [None]
  - AGGRESSION [None]
  - AGITATION [None]
  - ANURIA [None]
  - ARTERIAL INJURY [None]
  - BLOOD FIBRINOGEN DECREASED [None]
  - COAGULATION TIME PROLONGED [None]
  - CORONARY ARTERY OCCLUSION [None]
  - DEVICE FAILURE [None]
  - HAEMATOCRIT DECREASED [None]
  - HYPOTENSION [None]
  - IATROGENIC INJURY [None]
  - INTERNATIONAL NORMALISED RATIO INCREASED [None]
  - POST PROCEDURAL HAEMORRHAGE [None]
